FAERS Safety Report 22375858 (Version 2)
Quarter: 2023Q2

REPORT INFORMATION
  Report Type: Spontaneous
  Country: AU (occurrence: AU)
  Receive Date: 20230527
  Receipt Date: 20230608
  Transmission Date: 20230722
  Serious: Yes (Other)
  Sender: FDA-Public Use
  Company Number: AU-BAYER-2023A071288

PATIENT
  Sex: Male

DRUGS (1)
  1. EYLEA [Suspect]
     Active Substance: AFLIBERCEPT
     Indication: Product used for unknown indication
     Dosage: 1 DF, ONCE, SOLUTION FOR INJECTION IN PRE-FILLED SYRINGE, 40 MG/ML
     Route: 031
     Dates: start: 20230522, end: 20230522

REACTIONS (2)
  - Blindness transient [Unknown]
  - Intraocular pressure increased [Unknown]

NARRATIVE: CASE EVENT DATE: 20230522
